FAERS Safety Report 10167070 (Version 1)
Quarter: 2014Q2

REPORT INFORMATION
  Report Type: Spontaneous
  Country: US (occurrence: None)
  Receive Date: 20140509
  Receipt Date: 20140509
  Transmission Date: 20141212
  Serious: Yes (Other)
  Sender: FDA-Public Use
  Company Number: None

PATIENT
  Age: 69 Year
  Sex: Female
  Weight: 120.2 kg

DRUGS (16)
  1. WELCHOL [Suspect]
     Indication: BLOOD GLUCOSE INCREASED
     Dosage: 6 PILLS
     Route: 048
     Dates: start: 20140505, end: 20140507
  2. WELCHOL [Suspect]
     Indication: BLOOD TRIGLYCERIDES INCREASED
     Dosage: 6 PILLS
     Route: 048
     Dates: start: 20140505, end: 20140507
  3. METFORMIN [Concomitant]
  4. GLYPIZIDE [Concomitant]
  5. ATENOLOL [Concomitant]
  6. CLONIDINE [Concomitant]
  7. LISINOPRIL [Concomitant]
  8. HUMALOG [Concomitant]
  9. OMEGA-3 KRILL OIL [Concomitant]
  10. COQ10 [Concomitant]
  11. CALCIUM WITH D3 [Concomitant]
  12. B-12 [Concomitant]
  13. IRON [Concomitant]
  14. MAGNESIUM [Concomitant]
  15. MILK THISTLE [Concomitant]
  16. GREEN TEA [Concomitant]

REACTIONS (18)
  - Dysphagia [None]
  - Retching [None]
  - Eructation [None]
  - Throat irritation [None]
  - Peripheral swelling [None]
  - Joint swelling [None]
  - Abdominal discomfort [None]
  - Muscle spasms [None]
  - Constipation [None]
  - Hot flush [None]
  - Pruritus [None]
  - Stomatitis [None]
  - Skin irritation [None]
  - Urticaria [None]
  - Rash [None]
  - Peripheral swelling [None]
  - Myalgia [None]
  - Arthropathy [None]
